FAERS Safety Report 5613698-7 (Version None)
Quarter: 2008Q1

REPORT INFORMATION
  Report Type: 
  Country: None (occurrence: None)
  Receive Date: 20080205
  Receipt Date: 20080125
  Transmission Date: 20080703
  Serious: No
  Sender: FDA-Public Use
  Company Number: GB-BAXTER-2008BH000119

PATIENT
  Sex: Female

DRUGS (1)
  1. ATIVAN [Suspect]
     Indication: EPILEPSY
     Route: 042
     Dates: start: 20071231

REACTIONS (1)
  - EPILEPSY [None]
